FAERS Safety Report 19003486 (Version 1)
Quarter: 2021Q1

REPORT INFORMATION
  Report Type: Spontaneous
  Country: US (occurrence: US)
  Receive Date: 20210312
  Receipt Date: 20210312
  Transmission Date: 20210420
  Serious: No
  Sender: FDA-Public Use
  Company Number: US-OCULAR THERAPEUTIX-2021OCX00004

PATIENT
  Age: 66 Year
  Sex: Female
  Weight: 54.42 kg

DRUGS (10)
  1. DEXTENZA [Suspect]
     Active Substance: DEXAMETHASONE
     Indication: CORNEAL OEDEMA
  2. FOSAMAX [Concomitant]
     Active Substance: ALENDRONATE SODIUM
     Dosage: UNK, 1X/WEEK
  3. DEXTENZA [Suspect]
     Active Substance: DEXAMETHASONE
     Indication: CATARACT OPERATION
  4. BETIMOL ANTIBIOTIC EYE DROP [Concomitant]
  5. DEXTENZA [Suspect]
     Active Substance: DEXAMETHASONE
     Indication: CATARACT
     Dosage: 0.4 ?G, ONCE LEFT PUNCTUM
     Dates: start: 20201102
  6. VITAMIN D3 [Concomitant]
     Active Substance: CHOLECALCIFEROL
  7. ZINC. [Concomitant]
     Active Substance: ZINC
  8. CALCIUM [Concomitant]
     Active Substance: CALCIUM
  9. VITAMIN C [Concomitant]
     Active Substance: ASCORBIC ACID
  10. PREDNISONE DROPS [Concomitant]

REACTIONS (8)
  - Vitreous floaters [Recovering/Resolving]
  - Ocular hyperaemia [Recovering/Resolving]
  - Visual acuity reduced [Recovering/Resolving]
  - Photophobia [Recovering/Resolving]
  - Drug ineffective [Not Recovered/Not Resolved]
  - Corneal oedema [Unknown]
  - Eye pain [Recovering/Resolving]
  - Unevaluable event [Unknown]

NARRATIVE: CASE EVENT DATE: 202011
